FAERS Safety Report 12918010 (Version 1)
Quarter: 2016Q4

REPORT INFORMATION
  Report Type: Spontaneous
  Country: US (occurrence: US)
  Receive Date: 20161107
  Receipt Date: 20161107
  Transmission Date: 20170207
  Serious: No
  Sender: FDA-Public Use
  Company Number: US-ALLERGAN-1649058

PATIENT
  Age: 75 Year
  Sex: Male

DRUGS (2)
  1. SILODOSIN UNK [Suspect]
     Active Substance: SILODOSIN
     Indication: PROSTATOMEGALY
     Dosage: 8 MG, DAILY
     Route: 048
  2. SILODOSIN UNK [Suspect]
     Active Substance: SILODOSIN
     Indication: HYPERTONIC BLADDER

REACTIONS (1)
  - Pollakiuria [Recovered/Resolved]
